FAERS Safety Report 9162207 (Version 2)
Quarter: 2013Q1

REPORT INFORMATION
  Report Type: Spontaneous
  Country: AT (occurrence: AT)
  Receive Date: 20130314
  Receipt Date: 20130315
  Transmission Date: 20140127
  Serious: Yes (Life-Threatening, Hospitalization, Other)
  Sender: FDA-Public Use
  Company Number: PHHY2013AT024257

PATIENT
  Sex: Female

DRUGS (3)
  1. EXFORGE [Suspect]
     Dosage: UNK UKN, UNK
  2. HALOPERIDOL [Suspect]
  3. DIAZEPAM [Suspect]

REACTIONS (6)
  - Suicide attempt [Unknown]
  - Toxicity to various agents [Unknown]
  - General physical health deterioration [Unknown]
  - Respiratory failure [Unknown]
  - Renal failure [Unknown]
  - Coma [Unknown]
